FAERS Safety Report 6278215-X (Version None)
Quarter: 2009Q3

REPORT INFORMATION
  Report Type: 
  Country: None (occurrence: None)
  Receive Date: 20090722
  Receipt Date: 20090714
  Transmission Date: 20100115
  Serious: Yes (Disabling)
  Sender: FDA-Public Use
  Company Number: JP-ASTRAZENECA-2008AP04228

PATIENT
  Age: 30 Year
  Sex: Female
  Weight: 51 kg

DRUGS (17)
  1. ANAPEINE [Suspect]
     Indication: ANALGESIA
     Route: 008
     Dates: start: 20080523, end: 20080524
  2. XYLOCAINE [Concomitant]
     Indication: EPIDURAL ANAESTHESIA
     Route: 008
     Dates: start: 20080523, end: 20080523
  3. MARCAINE HYDROCHLORIDE PRESERVATIVE FREE [Concomitant]
     Indication: SPINAL ANAESTHESIA
     Route: 029
     Dates: start: 20080523, end: 20080523
  4. FENTANYL-100 [Concomitant]
     Indication: SPINAL ANAESTHESIA
     Route: 029
     Dates: start: 20080523, end: 20080523
  5. SOSEGON [Concomitant]
     Indication: ANALGESIA
     Route: 041
     Dates: start: 20080523, end: 20080523
  6. ATARAX [Concomitant]
     Indication: SEDATION
     Route: 041
     Dates: start: 20080523, end: 20080523
  7. VOLTAREN [Concomitant]
     Indication: ANALGESIA
     Route: 054
     Dates: start: 20080523, end: 20080524
  8. VOLTAREN [Concomitant]
     Route: 054
     Dates: start: 20080523, end: 20080523
  9. SOLACET F [Concomitant]
     Indication: FLUID REPLACEMENT
     Route: 042
     Dates: start: 20080523, end: 20080525
  10. SOLACET D [Concomitant]
     Indication: FLUID REPLACEMENT
     Route: 042
     Dates: start: 20080523, end: 20080523
  11. SOLACET D [Concomitant]
     Route: 042
     Dates: start: 20080524, end: 20080524
  12. METENARIN [Concomitant]
     Indication: UTERINE CONTRACTIONS ABNORMAL
     Route: 042
     Dates: start: 20080523, end: 20080524
  13. PANSPORIN [Concomitant]
     Indication: INFECTION PROPHYLAXIS
     Route: 042
     Dates: start: 20080523, end: 20080523
  14. PANSPORIN [Concomitant]
     Route: 042
     Dates: start: 20080524, end: 20080525
  15. XYLOCAINE [Concomitant]
     Indication: ANALGESIA
     Route: 008
     Dates: start: 20080524, end: 20080524
  16. ISOTONIC SODIUM CHLORIDE SOLUTION [Concomitant]
     Indication: FLUID REPLACEMENT
     Route: 042
     Dates: start: 20080524, end: 20080525
  17. ISOTONIC SODIUM CHLORIDE SOLUTION [Concomitant]
     Route: 008
     Dates: start: 20080524, end: 20080524

REACTIONS (10)
  - DRUG TOXICITY [None]
  - FEELING COLD [None]
  - FEMORAL NERVE PALSY [None]
  - ILLUSION [None]
  - MOVEMENT DISORDER [None]
  - NERVE ROOT COMPRESSION [None]
  - NERVE ROOT INJURY [None]
  - NERVOUS SYSTEM DISORDER [None]
  - PAIN [None]
  - SPINAL DISORDER [None]
